FAERS Safety Report 8277719-8 (Version None)
Quarter: 2012Q2

REPORT INFORMATION
  Report Type: 
  Country: None (occurrence: None)
  Receive Date: 20120412
  Receipt Date: 20120404
  Transmission Date: 20120825
  Serious: Yes (Other)
  Sender: FDA-Public Use
  Company Number: JP-VERTEX PHARMACEUTICALS INC.-AE-2012-005076

PATIENT
  Age: 62 Year
  Sex: Male

DRUGS (11)
  1. RIBAVIRIN [Concomitant]
     Indication: HEPATITIS C
     Route: 048
     Dates: start: 20120207, end: 20120226
  2. INTERFERON [Concomitant]
     Route: 051
     Dates: start: 20120227, end: 20120313
  3. INTERFERON [Concomitant]
     Route: 051
     Dates: start: 20120321, end: 20120404
  4. RIBAVIRIN [Concomitant]
     Route: 048
     Dates: start: 20120227, end: 20120404
  5. INTERFERON [Concomitant]
     Indication: HEPATITIS C
     Route: 051
     Dates: start: 20120207, end: 20120226
  6. FAMOTIDINE [Concomitant]
     Dates: start: 20120207
  7. INTERFERON [Concomitant]
     Route: 051
     Dates: start: 20120314, end: 20120320
  8. LOXONIN [Concomitant]
  9. ALLOPURINOL [Concomitant]
  10. TELAVIC (TELAPREVIR) [Suspect]
     Indication: HEPATITIS C
     Route: 048
     Dates: start: 20120207, end: 20120404
  11. CELESTAMINE TAB [Concomitant]
     Route: 048

REACTIONS (1)
  - RASH [None]
